FAERS Safety Report 5884901-3 (Version None)
Quarter: 2008Q3

REPORT INFORMATION
  Report Type: 
  Country: None (occurrence: None)
  Receive Date: 20080916
  Receipt Date: 20080905
  Transmission Date: 20090109
  Serious: Yes (Other)
  Sender: FDA-Public Use
  Company Number: BR-ROCHE-585337

PATIENT
  Age: 48 Year
  Sex: Female

DRUGS (1)
  1. RIVOTRIL [Suspect]
     Indication: VERTIGO
     Route: 048
     Dates: start: 20080801, end: 20080826

REACTIONS (2)
  - ASPARTATE AMINOTRANSFERASE INCREASED [None]
  - NEPHROLITHIASIS [None]
